FAERS Safety Report 5007820-3 (Version None)
Quarter: 2006Q2

REPORT INFORMATION
  Report Type: 
  Country: None (occurrence: None)
  Receive Date: 20060522
  Receipt Date: 20060511
  Transmission Date: 20061013
  Serious: Yes (Other)
  Sender: FDA-Public Use
  Company Number: PHBS2006BE07238

PATIENT
  Age: 9 Year
  Sex: Female

DRUGS (2)
  1. RITALIN [Suspect]
     Indication: ATTENTION DEFICIT/HYPERACTIVITY DISORDER
     Dosage: 5 MG, QD
     Route: 048
     Dates: start: 20050401
  2. RITALIN [Suspect]
     Dosage: 5 MG, BID
     Route: 048

REACTIONS (3)
  - PNEUMONIA [None]
  - PRURITUS [None]
  - RASH [None]
